FAERS Safety Report 8622586-3 (Version None)
Quarter: 2012Q3

REPORT INFORMATION
  Report Type: 
  Country: None (occurrence: None)
  Receive Date: 20120810
  Receipt Date: 20120731
  Transmission Date: 20120928
  Serious: Yes (Other)
  Sender: FDA-Public Use
  Company Number: 2012S1000644

PATIENT
  Age: 75 Year
  Sex: Female

DRUGS (3)
  1. ASPIRIN [Concomitant]
  2. EFFIENT [Suspect]
     Indication: CORONARY ARTERY DISEASE
     Dosage: 5 MG;1X;PO
     Route: 048
  3. LIVALO [Suspect]
     Indication: BLOOD CHOLESTEROL INCREASED
     Dosage: 2 MG;1X;PO
     Route: 048
     Dates: start: 20120410

REACTIONS (8)
  - MYALGIA [None]
  - DIZZINESS [None]
  - PHARYNGEAL HAEMORRHAGE [None]
  - NASOPHARYNGITIS [None]
  - BLOOD CHOLESTEROL INCREASED [None]
  - EPISTAXIS [None]
  - HYPOAESTHESIA [None]
  - BLOOD TRIGLYCERIDES INCREASED [None]
